FAERS Safety Report 5393946-1 (Version None)
Quarter: 2007Q3

REPORT INFORMATION
  Report Type: 
  Country: None (occurrence: None)
  Receive Date: 20070723
  Receipt Date: 20061127
  Transmission Date: 20080115
  Serious: No
  Sender: FDA-Public Use
  Company Number: A0628679A

PATIENT
  Age: 63 Year
  Sex: Female

DRUGS (1)
  1. AVANDIA [Suspect]
     Dosage: 4MG TWICE PER DAY
     Route: 048
     Dates: start: 20060901, end: 20061113

REACTIONS (4)
  - ARTHRALGIA [None]
  - FALL [None]
  - MUSCULAR WEAKNESS [None]
  - PRURITUS [None]
